FAERS Safety Report 23661521 (Version 1)
Quarter: 2024Q1

REPORT INFORMATION
  Report Type: Spontaneous
  Country: CZ (occurrence: CZ)
  Receive Date: 20240322
  Receipt Date: 20240322
  Transmission Date: 20240410
  Serious: Yes (Death, Life-Threatening, Hospitalization)
  Sender: FDA-Public Use
  Company Number: None

PATIENT
  Age: 34 Year
  Sex: Female

DRUGS (9)
  1. ENBREL [Suspect]
     Active Substance: ETANERCEPT
     Indication: Product used for unknown indication
     Dosage: 50MG BY SUBCUTANEOUS USE EVERY WEEK
     Route: 058
     Dates: start: 20230601, end: 20240222
  2. CELEBREX [Concomitant]
     Active Substance: CELECOXIB
     Indication: Pain
     Dosage: WHEN IN PAIN
     Route: 065
  3. OMEPRAZOLE [Concomitant]
     Active Substance: OMEPRAZOLE
     Indication: Product used for unknown indication
     Dosage: 1-0-0
     Route: 065
  4. MEDROL [Concomitant]
     Active Substance: METHYLPREDNISOLONE
     Indication: Product used for unknown indication
     Dosage: ONE DAY 2MG AND NEXT DAY 4MG
     Route: 065
     Dates: start: 202209
  5. MEDROL [Concomitant]
     Active Substance: METHYLPREDNISOLONE
     Dosage: ONE DAY 2MG AND NEXT DAY 4MG
     Route: 065
     Dates: start: 202209
  6. Delipid [Concomitant]
     Indication: Product used for unknown indication
     Dosage: 10MG/20MG 1DF, 0-0-1
     Route: 065
  7. ZALDIAR [Concomitant]
     Active Substance: ACETAMINOPHEN\TRAMADOL HYDROCHLORIDE
     Indication: Pain
     Dosage: WHEN IN PAIN
     Route: 065
  8. CALTRATE [Concomitant]
     Active Substance: CALCIUM CARBONATE
     Indication: Product used for unknown indication
     Dosage: 500/1000IU 0-0-1
     Route: 065
  9. URSODIOL [Concomitant]
     Active Substance: URSODIOL
     Indication: Product used for unknown indication
     Dosage: FREQ:12 H;1-0-1
     Route: 065

REACTIONS (8)
  - Multiple organ dysfunction syndrome [Fatal]
  - Disseminated intravascular coagulation [Fatal]
  - Dyspnoea [Unknown]
  - Cardio-respiratory arrest [Unknown]
  - Swelling face [Unknown]
  - Body temperature increased [Unknown]
  - Rhinorrhoea [Unknown]
  - Sepsis [Fatal]

NARRATIVE: CASE EVENT DATE: 20240226
